FAERS Safety Report 8108555-0 (Version None)
Quarter: 2012Q1

REPORT INFORMATION
  Report Type: 
  Country: None (occurrence: None)
  Receive Date: 20120202
  Receipt Date: 20120131
  Transmission Date: 20120608
  Serious: Yes (Death)
  Sender: FDA-Public Use
  Company Number: PHHY2012AU008262

PATIENT
  Sex: Female

DRUGS (2)
  1. ZOLEDRONOC ACID [Suspect]
     Dosage: 5 MG
     Route: 042
     Dates: start: 20110125
  2. ZOLEDRONOC ACID [Suspect]
     Dosage: 5 MG
     Route: 042

REACTIONS (1)
  - DEATH [None]
